FAERS Safety Report 9305494 (Version 1)
Quarter: 2013Q2

REPORT INFORMATION
  Report Type: Spontaneous
  Country: GB (occurrence: GB)
  Receive Date: 20130523
  Receipt Date: 20130523
  Transmission Date: 20140414
  Serious: Yes (Life-Threatening, Hospitalization, Disabling)
  Sender: FDA-Public Use
  Company Number: GB-AMGEN-GBRSP2013035934

PATIENT
  Age: 51 Year
  Sex: Female
  Weight: 76.2 kg

DRUGS (7)
  1. DENOSUMAB [Suspect]
     Indication: OSTEOPOROSIS
     Dosage: 60 MG, UNK
     Route: 058
     Dates: start: 20120828
  2. DENOSUMAB [Suspect]
     Dosage: UNK
     Dates: start: 20130213
  3. ADCAL D3 [Concomitant]
     Route: 048
  4. ATENOLOL [Concomitant]
     Dosage: 100 MG, UNK
     Route: 048
  5. FUROSEMIDE [Concomitant]
     Dosage: 20 MG, UNK
     Route: 048
  6. PREDNISOLONE [Concomitant]
     Dosage: 7.5 MG, QD
  7. WARFARIN [Concomitant]
     Dosage: 3 MG, QD
     Route: 048

REACTIONS (3)
  - Femoral neck fracture [Recovering/Resolving]
  - Renal failure [Recovering/Resolving]
  - Tachycardia [Recovering/Resolving]
